FAERS Safety Report 21160139 (Version 1)
Quarter: 2022Q3

REPORT INFORMATION
  Report Type: Spontaneous
  Country: US (occurrence: None)
  Receive Date: 20220801
  Receipt Date: 20220801
  Transmission Date: 20221027
  Serious: Yes (Other)
  Sender: FDA-Public Use
  Company Number: None

PATIENT
  Age: 58 Year
  Sex: Female
  Weight: 61.2 kg

DRUGS (7)
  1. PAXLOVID [Suspect]
     Active Substance: NIRMATRELVIR\RITONAVIR
     Indication: COVID-19
     Dates: start: 20220724, end: 20220728
  2. ALBUTEROL [Concomitant]
     Active Substance: ALBUTEROL
  3. LEVOFLOXACIN [Concomitant]
     Active Substance: LEVOFLOXACIN
  4. VITAMIN D NOS [Concomitant]
     Active Substance: VITAMIN D NOS
  5. CALCIUM [Concomitant]
     Active Substance: CALCIUM
  6. hair nail skin vitamin [Concomitant]
  7. MAGNESIUM [Concomitant]
     Active Substance: MAGNESIUM

REACTIONS (1)
  - COVID-19 [None]

NARRATIVE: CASE EVENT DATE: 20220724
